FAERS Safety Report 7919041-2 (Version None)
Quarter: 2011Q4

REPORT INFORMATION
  Report Type: 
  Country: None (occurrence: None)
  Receive Date: 20111116
  Receipt Date: 20111107
  Transmission Date: 20120403
  Serious: Yes (Hospitalization)
  Sender: FDA-Public Use
  Company Number: US-ASTRAZENECA-2011SE64020

PATIENT
  Age: 81 Year
  Sex: Female

DRUGS (2)
  1. CRESTOR [Suspect]
     Indication: BLOOD CHOLESTEROL INCREASED
     Route: 048
     Dates: start: 20110902
  2. TRICOR [Concomitant]

REACTIONS (4)
  - OEDEMA [None]
  - CELLULITIS [None]
  - MALAISE [None]
  - LOCALISED INFECTION [None]
